FAERS Safety Report 6403590-2 (Version None)
Quarter: 2009Q4

REPORT INFORMATION
  Report Type: 
  Country: None (occurrence: None)
  Receive Date: 20091015
  Receipt Date: 20091015
  Transmission Date: 20100525
  Serious: Yes (Life-Threatening, Hospitalization, Disabling)
  Sender: FDA-Public Use
  Company Number: None

PATIENT
  Sex: Female
  Weight: 79.3795 kg

DRUGS (3)
  1. LAMICTAL [Suspect]
     Indication: BIPOLAR DISORDER
     Dosage: 50MG TWICE DAILY PO
     Route: 048
     Dates: start: 20090728, end: 20090812
  2. EFFEXOR XR [Concomitant]
  3. VENLAFAXINE [Concomitant]

REACTIONS (7)
  - BODY TEMPERATURE DECREASED [None]
  - CONJUNCTIVITIS [None]
  - FATIGUE [None]
  - LYMPHADENOPATHY [None]
  - NAUSEA [None]
  - STEVENS-JOHNSON SYNDROME [None]
  - TOXIC EPIDERMAL NECROLYSIS [None]
